FAERS Safety Report 4943640-3 (Version None)
Quarter: 2006Q1

REPORT INFORMATION
  Report Type: 
  Country: None (occurrence: None)
  Receive Date: 20060310
  Receipt Date: 20060225
  Transmission Date: 20060701
  Serious: Yes (Life-Threatening, Hospitalization)
  Sender: FDA-Public Use
  Company Number: 200600817

PATIENT
  Age: 28 Year
  Sex: Male
  Weight: 80 kg

DRUGS (1)
  1. BOTOX [Suspect]
     Indication: STRABISMUS
     Dosage: 2.5 UNITS ONCE IM
     Route: 030

REACTIONS (9)
  - ASTHENIA [None]
  - BULBAR PALSY [None]
  - DYSPHAGIA [None]
  - MUSCULAR WEAKNESS [None]
  - MYASTHENIA GRAVIS [None]
  - OPHTHALMOPLEGIA [None]
  - RESPIRATORY ARREST [None]
  - SPEECH DISORDER [None]
  - TONGUE PARALYSIS [None]
